FAERS Safety Report 5264734-1 (Version None)
Quarter: 2007Q1

REPORT INFORMATION
  Report Type: 
  Country: None (occurrence: None)
  Receive Date: 20061117
  Receipt Date: 20051214
  Transmission Date: 20070707
  Serious: Yes (Hospitalization, Disabling)
  Sender: FDA-Public Use
  Company Number: US-JNJFOC-20051002198

PATIENT
  Age: 78 Year
  Sex: Male
  Weight: 74.8435 kg

DRUGS (18)
  1. LEVAQUIN [Suspect]
     Indication: INFECTION
     Dosage: SEE IMAGE
     Route: 048
     Dates: start: 20050217, end: 20050224
  2. LEVAQUIN [Suspect]
     Indication: URINARY TRACT INFECTION
     Dosage: SEE IMAGE
     Route: 048
     Dates: start: 20050217, end: 20050224
  3. LEVAQUIN [Suspect]
     Indication: INFECTION
     Dosage: SEE IMAGE
     Route: 048
     Dates: start: 20050820, end: 20050830
  4. LEVAQUIN [Suspect]
     Indication: URINARY TRACT INFECTION
     Dosage: SEE IMAGE
     Route: 048
     Dates: start: 20050820, end: 20050830
  5. ASPIRIN [Concomitant]
  6. AVODART (ALL OTHER THERAPEUTIC PRODUCTS) [Concomitant]
  7. RANITIDINE [Concomitant]
  8. PLAVIX [Concomitant]
  9. CARDIZEM LA (DILTIAZEM HYDROCHLORIDE) [Concomitant]
  10. PRAVACHOL [Concomitant]
  11. CEREFOLIN (FOLATE SODIUM) [Concomitant]
  12. NAMENDA [Concomitant]
  13. DUONEB (MEDIHALER-DUO) [Concomitant]
  14. ARICEPT [Concomitant]
  15. DETROL LA [Concomitant]
  16. UROXATRAL [Concomitant]
  17. SULINDAC [Concomitant]
  18. DIOVAN [Concomitant]

REACTIONS (1)
  - TENDON RUPTURE [None]
